FAERS Safety Report 4576054-9 (Version None)
Quarter: 2005Q1

REPORT INFORMATION
  Report Type: 
  Country: None (occurrence: None)
  Receive Date: 20050204
  Receipt Date: 20050126
  Transmission Date: 20050727
  Serious: No
  Sender: FDA-Public Use
  Company Number: FR-2005-001210

PATIENT
  Age: 42 Year
  Sex: Female

DRUGS (1)
  1. MIRENA [Suspect]
     Dosage: 20 ?G, CONT.  INTRA-UTERINE
     Route: 015
     Dates: start: 19990907, end: 20050116

REACTIONS (2)
  - COMPLICATION OF DEVICE REMOVAL [None]
  - DEVICE FAILURE [None]
